FAERS Safety Report 10380612 (Version 1)
Quarter: 2014Q1

REPORT INFORMATION
  Report Type: Spontaneous
  Country: US (occurrence: None)
  Receive Date: 20140306
  Receipt Date: 20140306
  Transmission Date: 20141002
  Serious: Yes (Other)
  Sender: FDA-Public Use
  Company Number: 163-21880-13063599

PATIENT
  Age: 71 Year
  Sex: Female
  Weight: 47.6 kg

DRUGS (14)
  1. REVLIMID (LENALIDOMIDE) (25 MILLIGRAM, CAPSULES) [Suspect]
     Indication: PLASMA CELL MYELOMA
     Dosage: 25 MG, 21 IN 28 D, PO
     Route: 048
     Dates: start: 20120618
  2. CRANBERRY (VACCINIUM OXYCOCCUS FRUIT EXTRACT) [Concomitant]
  3. VITAMIN C (ASCORBIC ACID) [Concomitant]
  4. VITAMIN E (TOCOPHEROL) [Concomitant]
  5. COMPLETE MULTIVITAMIN 9MULTIVITAMINS) [Concomitant]
  6. DEXAMETHASONE (DEXAMETHASONE) [Concomitant]
  7. ZOMETA(ZOLEDRONIC ACID) [Concomitant]
  8. METFORMIN HCL(METFORMIN HYDROCHLORIDE) [Concomitant]
  9. GLIMEPIRIDE(GLIMEPIRIDE) [Concomitant]
  10. LISINOPRIL(LISINOPRIL) [Concomitant]
  11. LEVOTHYROXINE(LEVOTHYROXINE) [Concomitant]
  12. BETA-CAROTENE(BETACAROTENE) [Concomitant]
  13. ASPIRIN(ACETYLSALICYLIC ACID) [Suspect]
  14. CALCIUM + D (OS-CAL) [Concomitant]

REACTIONS (1)
  - Lactose intolerance [None]
